FAERS Safety Report 18766470 (Version 1)
Quarter: 2021Q1

REPORT INFORMATION
  Report Type: Other
  Country: CA (occurrence: CA)
  Receive Date: 20210121
  Receipt Date: 20210121
  Transmission Date: 20210419
  Serious: Yes (Other)
  Sender: FDA-Public Use
  Company Number: CA-ACCORD-214741

PATIENT
  Age: 61 Year
  Sex: Female

DRUGS (3)
  1. PAMIDRONIC ACID [Concomitant]
     Active Substance: PAMIDRONIC ACID
     Indication: METASTASES TO BONE
     Route: 065
  2. PACLITAXEL/PACLITAXEL LIPOSOME [Suspect]
     Active Substance: PACLITAXEL
     Indication: INVASIVE DUCTAL BREAST CARCINOMA
     Dosage: 1 EVERY 1 WEEKS
     Route: 042
  3. TRASTUZUMAB. [Suspect]
     Active Substance: TRASTUZUMAB
     Indication: INVASIVE DUCTAL BREAST CARCINOMA
     Dosage: 1 EVERY 1 WEEKS
     Route: 065

REACTIONS (2)
  - Malignant neoplasm progression [Unknown]
  - Invasive ductal breast carcinoma [Unknown]
